FAERS Safety Report 8982612 (Version 2)
Quarter: 2013Q1

REPORT INFORMATION
  Report Type: Spontaneous
  Country: US (occurrence: US)
  Receive Date: 20121221
  Receipt Date: 20130123
  Transmission Date: 20140127
  Serious: Yes (Hospitalization)
  Sender: FDA-Public Use
  Company Number: US-BIOMARINAP-US-2012-100027

PATIENT
  Sex: Female
  Weight: 78.5 kg

DRUGS (4)
  1. KUVAN [Suspect]
     Indication: PHENYLKETONURIA
     Dosage: 20 MG/KG, QD
     Route: 048
     Dates: start: 20120809
  2. BUSPAR [Concomitant]
     Indication: PRODUCT USED FOR UNKNOWN INDICATION
     Dosage: 10 MG, UNK
  3. CYMBALTA [Concomitant]
     Indication: PRODUCT USED FOR UNKNOWN INDICATION
     Dosage: 60 MG, UNK
  4. PERPHENAZINE [Concomitant]
     Indication: PRODUCT USED FOR UNKNOWN INDICATION
     Dosage: UNK

REACTIONS (2)
  - Suicidal ideation [Unknown]
  - Hallucination, auditory [Unknown]
